FAERS Safety Report 5630356-3 (Version None)
Quarter: 2008Q1

REPORT INFORMATION
  Report Type: 
  Country: None (occurrence: None)
  Receive Date: 20080219
  Receipt Date: 20080215
  Transmission Date: 20080703
  Serious: Yes (Death)
  Sender: FDA-Public Use
  Company Number: PHBS2008NL02189

PATIENT

DRUGS (4)
  1. ZYPREXA [Suspect]
  2. METOPROLOL TARTRATE [Suspect]
  3. PARACETAMOL [Suspect]
  4. RITALIN [Suspect]
     Dosage: 10 MG, UNK
     Route: 048

REACTIONS (1)
  - SUICIDE ATTEMPT [None]
